FAERS Safety Report 8462224-6 (Version None)
Quarter: 2012Q2

REPORT INFORMATION
  Report Type: 
  Country: None (occurrence: None)
  Receive Date: 20120625
  Receipt Date: 20120613
  Transmission Date: 20120825
  Serious: Yes (Hospitalization)
  Sender: FDA-Public Use
  Company Number: GB-FRI-1000030781

PATIENT
  Age: 36 Year
  Sex: Female

DRUGS (7)
  1. CITALOPRAM HYDROBROMIDE [Suspect]
     Dosage: 40 MG
     Route: 048
     Dates: end: 20120418
  2. CITALOPRAM HYDROBROMIDE [Suspect]
     Dosage: 20 MG
     Route: 048
     Dates: start: 20120419
  3. PALIPERIDONE [Suspect]
     Indication: PSYCHOTIC DISORDER
     Dosage: 150 MG ON DAY ONE
     Route: 030
     Dates: start: 20120322
  4. LORAZEPAM [Concomitant]
     Dosage: 6 MG
     Dates: start: 20120330
  5. PALIPERIDONE [Suspect]
     Dosage: 100 MG ON DAY EIGHT
     Route: 030
     Dates: start: 20120329
  6. PROMETHAZINE [Concomitant]
  7. DIAZEPAM [Concomitant]
     Dosage: 5 MG

REACTIONS (3)
  - AGITATION [None]
  - PSYCHOTIC DISORDER [None]
  - EXTRAPYRAMIDAL DISORDER [None]
